FAERS Safety Report 5836756-0 (Version None)
Quarter: 2008Q3

REPORT INFORMATION
  Report Type: 
  Country: None (occurrence: None)
  Receive Date: 20080806
  Receipt Date: 20080806
  Transmission Date: 20090109
  Serious: Yes (Life-Threatening, Hospitalization)
  Sender: FDA-Public Use
  Company Number: None

PATIENT
  Age: 65 Year
  Sex: Female
  Weight: 96.1626 kg

DRUGS (3)
  1. DOXORUBICIN HCL [Suspect]
     Indication: SARCOMA
     Dosage: 25MG/M2 DAILY X3 IV
     Route: 042
     Dates: start: 20080429, end: 20080520
  2. DEXRAZOXANE [Suspect]
     Indication: SARCOMA
     Dosage: 250MG/M2 DAILY X3 IV
     Route: 042
     Dates: start: 20080429, end: 20080520
  3. IFOSFAMIDE [Suspect]
     Indication: SARCOMA
     Dosage: 2500MG/M2 DAILY X3 IV
     Dates: start: 20080429, end: 20080520

REACTIONS (7)
  - BLOOD CULTURE POSITIVE [None]
  - BODY TEMPERATURE INCREASED [None]
  - NEUTROPENIC SEPSIS [None]
  - PLATELET COUNT DECREASED [None]
  - PSEUDOMONAS INFECTION [None]
  - RENAL IMPAIRMENT [None]
  - WHITE BLOOD CELL COUNT DECREASED [None]
